FAERS Safety Report 24120395 (Version 1)
Quarter: 2024Q3

REPORT INFORMATION
  Report Type: Spontaneous
  Country: BE (occurrence: BE)
  Receive Date: 20240722
  Receipt Date: 20240722
  Transmission Date: 20241017
  Serious: Yes (Hospitalization, Other)
  Sender: ELI LILLY AND CO
  Company Number: BE-ELI_LILLY_AND_COMPANY-BE202407008356

PATIENT
  Age: 35 Year
  Sex: Male

DRUGS (1)
  1. IXEKIZUMAB [Suspect]
     Active Substance: IXEKIZUMAB
     Indication: Psoriasis
     Dosage: UNK, UNKNOWN
     Route: 065

REACTIONS (5)
  - Otitis media [Recovering/Resolving]
  - Erysipelas [Recovering/Resolving]
  - Upper respiratory tract infection [Recovering/Resolving]
  - Facial paresis [Recovered/Resolved]
  - Pharyngeal abscess [Recovering/Resolving]
